FAERS Safety Report 7563380-4 (Version None)
Quarter: 2011Q2

REPORT INFORMATION
  Report Type: 
  Country: None (occurrence: None)
  Receive Date: 20110622
  Receipt Date: 20110617
  Transmission Date: 20111010
  Serious: Yes (Other)
  Sender: FDA-Public Use
  Company Number: A0931904A

PATIENT
  Sex: Female

DRUGS (1)
  1. ADVAIR DISKUS 100/50 [Suspect]
     Dosage: 1PUFF TWICE PER DAY
     Route: 055
     Dates: start: 20110617

REACTIONS (6)
  - DYSPNOEA [None]
  - CHOKING [None]
  - COUGH [None]
  - CHEST DISCOMFORT [None]
  - INCREASED BRONCHIAL SECRETION [None]
  - DRUG INEFFECTIVE [None]
